FAERS Safety Report 6233030-8 (Version None)
Quarter: 2009Q2

REPORT INFORMATION
  Report Type: 
  Country: None (occurrence: None)
  Receive Date: 20090617
  Receipt Date: 20090610
  Transmission Date: 20091009
  Serious: Yes (Hospitalization)
  Sender: FDA-Public Use
  Company Number: B0578274A

PATIENT
  Sex: Male

DRUGS (12)
  1. VENTOLIN [Suspect]
     Indication: ASTHMATIC CRISIS
     Route: 055
  2. SERETIDE [Concomitant]
     Indication: ASTHMA
     Route: 055
  3. ECAZIDE [Concomitant]
     Route: 048
  4. LASIX [Concomitant]
     Route: 048
  5. NEXIUM [Concomitant]
     Indication: DRUG USE FOR UNKNOWN INDICATION
     Route: 048
  6. DEPAMIDE [Concomitant]
     Indication: BIPOLAR DISORDER
     Route: 048
  7. SERESTA [Concomitant]
     Indication: ANXIETY
     Route: 048
  8. DILTIAZEM HCL [Concomitant]
     Route: 048
  9. XATRAL [Concomitant]
     Indication: BENIGN PROSTATIC HYPERPLASIA
     Route: 048
  10. KALEORID [Concomitant]
     Route: 048
  11. TOPALGIC ( FRANCE ) [Concomitant]
     Indication: PAIN
     Route: 048
  12. DOLIPRANE [Concomitant]
     Indication: PAIN
     Route: 048

REACTIONS (3)
  - CONFUSIONAL STATE [None]
  - OVERDOSE [None]
  - TREMOR [None]
